FAERS Safety Report 8075630-9 (Version None)
Quarter: 2012Q1

REPORT INFORMATION
  Report Type: 
  Country: None (occurrence: None)
  Receive Date: 20120127
  Receipt Date: 20120117
  Transmission Date: 20120608
  Serious: Yes (Other)
  Sender: FDA-Public Use
  Company Number: AU-PURDUE-USA-2012-0080865

PATIENT
  Sex: Male
  Weight: 107 kg

DRUGS (16)
  1. PLACEBO [Suspect]
     Indication: PRODUCT USED FOR UNKNOWN INDICATION
     Dosage: 40 MCG, Q1H
     Route: 062
     Dates: start: 20111115
  2. CYMBALTA [Concomitant]
     Indication: PRODUCT USED FOR UNKNOWN INDICATION
     Dosage: UNK
     Dates: start: 20110301
  3. JANUMET [Concomitant]
     Indication: PRODUCT USED FOR UNKNOWN INDICATION
     Dosage: UNK
     Dates: start: 20100101
  4. BUPRENORPHINE HCL [Suspect]
     Dosage: 20 MCG, Q1H
     Route: 062
     Dates: start: 20111103, end: 20111108
  5. BUPRENORPHINE HCL [Suspect]
     Dosage: 30 MCG, Q1H
     Route: 062
     Dates: start: 20111108, end: 20111115
  6. BUPRENORPHINE HCL [Suspect]
     Dosage: 10 MCG, Q1H
     Route: 062
     Dates: start: 20111028, end: 20111103
  7. PLACEBO [Suspect]
     Dosage: 30 MCG, Q1H
     Route: 062
     Dates: start: 20111108, end: 20111115
  8. LANTUS [Concomitant]
     Indication: PRODUCT USED FOR UNKNOWN INDICATION
     Dosage: UNK
     Dates: start: 20110901
  9. EFFEXOR [Concomitant]
     Indication: PRODUCT USED FOR UNKNOWN INDICATION
     Dosage: UNK
     Dates: start: 20000101
  10. PLACEBO [Suspect]
     Dosage: 20 MCG, Q1H
     Route: 062
     Dates: start: 20111103, end: 20111108
  11. AVAPRO [Concomitant]
     Indication: PRODUCT USED FOR UNKNOWN INDICATION
     Dosage: UNK
     Dates: start: 20090101
  12. BUPRENORPHINE HCL [Suspect]
     Indication: PRODUCT USED FOR UNKNOWN INDICATION
     Dosage: 40 MCG, Q1H
     Route: 062
     Dates: start: 20111115
  13. BUPRENORPHINE [Suspect]
     Dosage: 5 MCG, Q1H
     Route: 062
     Dates: start: 20111018, end: 20111028
  14. PLACEBO [Suspect]
     Dosage: 5 MCG, Q1H
     Route: 062
     Dates: start: 20111018, end: 20111028
  15. PLACEBO [Suspect]
     Dosage: 10 MCG, Q1H
     Route: 062
     Dates: start: 20111028, end: 20111103
  16. LIPITOR [Concomitant]
     Indication: PRODUCT USED FOR UNKNOWN INDICATION
     Dosage: UNK
     Dates: start: 20090101

REACTIONS (1)
  - CHEST PAIN [None]
